FAERS Safety Report 5288751-0 (Version None)
Quarter: 2007Q2

REPORT INFORMATION
  Report Type: 
  Country: None (occurrence: None)
  Receive Date: 20070405
  Receipt Date: 20070403
  Transmission Date: 20071010
  Serious: Yes (Hospitalization)
  Sender: FDA-Public Use
  Company Number: US-BOEHRINGER INGELHEIM PHARMACEUTICALS, INC.-2007-BP-03086BP

PATIENT
  Sex: Male
  Weight: 37 kg

DRUGS (2)
  1. MICARDIS [Suspect]
     Indication: HYPERTENSION
     Route: 048
     Dates: start: 20070213, end: 20070302
  2. MICARDIS [Suspect]
     Indication: HYPERTENSION

REACTIONS (2)
  - BLOOD CREATININE INCREASED [None]
  - PRESYNCOPE [None]
